FAERS Safety Report 7943565-5 (Version None)
Quarter: 2011Q4

REPORT INFORMATION
  Report Type: 
  Country: None (occurrence: None)
  Receive Date: 20111128
  Receipt Date: 20111123
  Transmission Date: 20120403
  Serious: Yes (Other)
  Sender: FDA-Public Use
  Company Number: GXKR2011DE003403

PATIENT
  Sex: Male

DRUGS (2)
  1. OMNITROP [Suspect]
     Indication: GROWTH RETARDATION
     Dosage: UNK UKN, UNK
     Route: 065
     Dates: start: 20100101, end: 20110401
  2. NORDITROPIN [Suspect]
     Indication: GROWTH RETARDATION
     Dosage: UNK UKN, UNK
     Dates: start: 20040101, end: 20100101

REACTIONS (2)
  - BONE MARROW OEDEMA [None]
  - ARTHRALGIA [None]
